FAERS Safety Report 5011996-1 (Version None)
Quarter: 2006Q2

REPORT INFORMATION
  Report Type: 
  Country: None (occurrence: None)
  Receive Date: 20060524
  Receipt Date: 20060509
  Transmission Date: 20061013
  Serious: Yes (Hospitalization)
  Sender: FDA-Public Use
  Company Number: GXKR2006NL02578

PATIENT
  Age: 78 Year
  Sex: Female

DRUGS (4)
  1. CIPROFLOXACIN [Suspect]
     Indication: RESPIRATORY TRACT INFECTION
     Dosage: 500 MG, BID
  2. CLINDAMYCIN [Suspect]
     Indication: RESPIRATORY TRACT INFECTION
     Dosage: 300 MG, BID
  3. LEVOFLOXACIN [Suspect]
     Indication: RESPIRATORY TRACT INFECTION
     Dosage: 500 MG, QD
  4. AMOXICILLIN+CLAVULANATE (NGX) (AMOXICILLIN, CLAVULANATE) [Suspect]
     Indication: URINARY TRACT INFECTION
     Dosage: 1200 MG, TID

REACTIONS (8)
  - BLOOD ALBUMIN DECREASED [None]
  - C-REACTIVE PROTEIN INCREASED [None]
  - CARDIAC MURMUR [None]
  - COLITIS PSEUDOMEMBRANOUS [None]
  - GENERAL PHYSICAL HEALTH DETERIORATION [None]
  - PYREXIA [None]
  - RESPIRATORY TRACT INFECTION [None]
  - RHONCHI [None]
